FAERS Safety Report 22286233 (Version 1)
Quarter: 2023Q2

REPORT INFORMATION
  Report Type: Spontaneous
  Country: US (occurrence: US)
  Receive Date: 20230505
  Receipt Date: 20230505
  Transmission Date: 20230722
  Serious: Yes (Death, Hospitalization, Other)
  Sender: FDA-Public Use
  Company Number: US-TOLMAR, INC.-23US040604

PATIENT
  Age: 78 Year
  Sex: Male

DRUGS (2)
  1. ELIGARD [Suspect]
     Active Substance: LEUPROLIDE ACETATE
     Indication: Prostate cancer metastatic
     Dosage: 22.5 MILLIGRAM, Q 3 MONTH
     Route: 030
     Dates: start: 2018
  2. BICALUTAMIDE [Suspect]
     Active Substance: BICALUTAMIDE
     Indication: Prostate cancer metastatic
     Dosage: 50 MILLIGRAM, QD
     Route: 048

REACTIONS (12)
  - Obstructive shock [Fatal]
  - Pulmonary embolism [Fatal]
  - Malignant ascites [Not Recovered/Not Resolved]
  - Renal failure [Not Recovered/Not Resolved]
  - Tumour lysis syndrome [Recovered/Resolved]
  - Encephalopathy [Not Recovered/Not Resolved]
  - Escherichia bacteraemia [Not Recovered/Not Resolved]
  - Acute kidney injury [Not Recovered/Not Resolved]
  - Prostatic specific antigen increased [Unknown]
  - Malignant neoplasm progression [Not Recovered/Not Resolved]
  - Incorrect route of product administration [Unknown]
  - Fatigue [Unknown]

NARRATIVE: CASE EVENT DATE: 20180101
